FAERS Safety Report 9490348 (Version 1)
Quarter: 2013Q3

REPORT INFORMATION
  Report Type: Spontaneous
  Country: DE (occurrence: DE)
  Receive Date: 20130830
  Receipt Date: 20130830
  Transmission Date: 20140515
  Serious: Yes (Other)
  Sender: FDA-Public Use
  Company Number: DE-JNJFOC-20130810182

PATIENT
  Age: 41 Year
  Sex: Male

DRUGS (2)
  1. REGAINE MAENNER [Suspect]
     Route: 061
  2. REGAINE MAENNER [Suspect]
     Indication: ANDROGENETIC ALOPECIA
     Route: 061

REACTIONS (1)
  - Angina pectoris [Unknown]
